FAERS Safety Report 9800456 (Version 1)
Quarter: 2014Q1

REPORT INFORMATION
  Report Type: Report from Study
  Country: US (occurrence: US)
  Receive Date: 20140107
  Receipt Date: 20140107
  Transmission Date: 20141002
  Serious: Yes (Hospitalization, Other)
  Sender: FDA-Public Use
  Company Number: US-ROCHE-1328105

PATIENT
  Age: 45 Year
  Sex: Female

DRUGS (21)
  1. XOLAIR [Suspect]
     Indication: ASTHMA
     Route: 065
     Dates: start: 20111206, end: 201211
  2. XOLAIR [Suspect]
     Indication: RHINITIS ALLERGIC
  3. ADVAIR DISKUS [Concomitant]
     Dosage: DOSE. 1 INHALATION 2 TIMES DAILY
     Route: 065
  4. ALLEGRA [Concomitant]
     Dosage: 1 ORAL TWO TIMES DAILY
     Route: 048
  5. POTASSIUM CHLORIDE, CONTROLLED RELEASE [Concomitant]
     Dosage: 1 ORAL DAILY
     Route: 048
  6. FUROSEMIDE [Concomitant]
     Dosage: 1 ORAL DAILY
     Route: 048
  7. GLUCOPHAGE XR [Concomitant]
     Dosage: 1 ORAL TWO TIMES DAILY
     Route: 048
  8. GLUCOTROL XL [Concomitant]
     Dosage: 1 ORAL DAILY
     Route: 048
  9. CODEINE [Concomitant]
  10. NYSTATIN [Concomitant]
     Route: 065
  11. LACTOBACILLUS [Concomitant]
     Route: 048
  12. ZOLOFT [Concomitant]
     Dosage: 1 PO Q DAY IN AM
     Route: 048
  13. EPIPEN [Concomitant]
     Dosage: 0.3MG IN 0.3ML. UCT DICT GO TO ER
     Route: 030
  14. FLONASE [Concomitant]
     Dosage: ^50MCG/ACT SUSPENSION. 1-2 SQ EA NOPS QD^
     Route: 065
  15. PREVACID [Concomitant]
     Route: 048
  16. SINGULAIR [Concomitant]
     Route: 048
  17. SYMBICORT [Concomitant]
     Dosage: 1 PUFF BID
     Route: 065
  18. DUONEB [Concomitant]
     Route: 065
  19. FLEXERIL (UNITED STATES) [Concomitant]
     Route: 048
  20. ALBUTEROL SULFATE [Concomitant]
     Route: 065
  21. OMNICEF (UNITED STATES) [Concomitant]
     Route: 065

REACTIONS (38)
  - Bronchitis [Unknown]
  - Asthma [Unknown]
  - Haemoptysis [Unknown]
  - Syncope [Unknown]
  - Pulse absent [Unknown]
  - Sleep apnoea syndrome [Unknown]
  - Headache [Unknown]
  - Dyspnoea exertional [Unknown]
  - Productive cough [Unknown]
  - Dyspnoea [Unknown]
  - Aspartate aminotransferase increased [Unknown]
  - Upper-airway cough syndrome [Unknown]
  - Breath sounds abnormal [Unknown]
  - Loss of consciousness [Unknown]
  - Oropharyngeal pain [Unknown]
  - Insomnia [Unknown]
  - Asthenia [Unknown]
  - Decreased appetite [Unknown]
  - Exercise tolerance decreased [Unknown]
  - Chest discomfort [Unknown]
  - Poor quality sleep [Unknown]
  - Nasal congestion [Unknown]
  - Lung disorder [Unknown]
  - Epistaxis [Unknown]
  - Chest discomfort [Unknown]
  - Middle insomnia [Unknown]
  - Nasal mucosal discolouration [Unknown]
  - Alanine aminotransferase increased [Unknown]
  - Wheezing [Unknown]
  - Electrocardiogram repolarisation abnormality [Unknown]
  - Cough [Unknown]
  - Chest pain [Unknown]
  - Chills [Unknown]
  - Wheezing [Unknown]
  - Eyelid oedema [Unknown]
  - Restrictive pulmonary disease [Unknown]
  - Body temperature increased [Unknown]
  - Malaise [Unknown]
